FAERS Safety Report 7862584 (Version 4)
Quarter: 2013Q2

REPORT INFORMATION
  Report Type: Spontaneous
  Country: US (occurrence: US)
  Receive Date: 20110318
  Receipt Date: 20130621
  Transmission Date: 20140414
  Serious: Yes (Hospitalization, Other)
  Sender: FDA-Public Use
  Company Number: US-ROCHE-747986

PATIENT
  Age: 18 Year
  Sex: Female
  Weight: 65.8 kg

DRUGS (7)
  1. ACCUTANE [Suspect]
     Indication: ACNE
     Route: 065
     Dates: start: 198908, end: 198912
  2. ACCUTANE [Suspect]
     Route: 065
     Dates: start: 199102, end: 199106
  3. ACCUTANE [Suspect]
     Dosage: 2000/2001 (EXACT DATES NOT KNOWN)
     Route: 065
  4. IBUPROFEN [Concomitant]
  5. FOLIC ACID [Concomitant]
  6. MIRENA [Concomitant]
  7. NORETHISTERONE [Concomitant]
     Dosage: REPORTED: CAMILA
     Route: 065

REACTIONS (8)
  - Cytomegalovirus hepatitis [Unknown]
  - Inflammatory bowel disease [Unknown]
  - Emotional distress [Unknown]
  - Colitis ulcerative [Unknown]
  - Osteopenia [Unknown]
  - Skin discolouration [Unknown]
  - Mitral valve prolapse [Unknown]
  - Pneumonia [Unknown]
